FAERS Safety Report 10239425 (Version 1)
Quarter: 2014Q1

REPORT INFORMATION
  Report Type: Spontaneous
  Country: US (occurrence: None)
  Receive Date: 20140306
  Receipt Date: 20140306
  Transmission Date: 20141002
  Serious: Yes (Other)
  Sender: FDA-Public Use
  Company Number: 163-21880-13034102

PATIENT
  Age: 71 Year
  Sex: Female
  Weight: 60.8 kg

DRUGS (10)
  1. REVLIMID (LENALIDOMIDE) (15 MILLIGRAM, CAPSULES) [Suspect]
     Indication: PLASMA CELL MYELOMA
     Route: 048
     Dates: start: 20101005
  2. ACYCLOVIR (ACICLOVIR) (TABLETS) [Concomitant]
  3. CENTRUM (CENTRUM) (CHEWABLE TABLET) [Concomitant]
  4. DEXAMETHASONE (DEXAMETHASONE) (TABLETS) [Concomitant]
  5. AMLODIPINE (AMLODIPINE) (TABLETS) [Concomitant]
  6. CALCITRIOL (CALCITRIOL) (CAPSULES) [Concomitant]
  7. CALCIUM-MAGNESIUM (CALCIUM W/MAGNESIUM) (TABLETS) [Concomitant]
  8. GNP VITAMIN C (TABLETS) [Concomitant]
  9. B-COMPLEX WITH VITAMIN C (TABLETS) [Concomitant]
  10. ASPIRIN (CHEWABLE TABLET) [Concomitant]

REACTIONS (9)
  - Renal impairment [None]
  - White blood cell count decreased [None]
  - Proteinuria [None]
  - Dyspepsia [None]
  - Fatigue [None]
  - Blood creatinine increased [None]
  - Constipation [None]
  - Abdominal pain upper [None]
  - Nasopharyngitis [None]
